FAERS Safety Report 9431852 (Version 1)
Quarter: 2013Q3

REPORT INFORMATION
  Report Type: Spontaneous
  Country: US (occurrence: None)
  Receive Date: 20130726
  Receipt Date: 20130726
  Transmission Date: 20140515
  Serious: Yes (Other)
  Sender: FDA-Public Use
  Company Number: 2013AP006787

PATIENT
  Age: 59 Year
  Sex: Male

DRUGS (8)
  1. OMEPRAZOLE DELAYED-RELEASE CAPSULES, USP [Suspect]
     Dates: start: 201009, end: 201108
  2. GEMFIBROZIL [Suspect]
     Indication: ELECTROCARDIOGRAM ST SEGMENT ELEVATION
  3. GEMFIBROZIL [Suspect]
     Indication: MYOCARDIAL INFARCTION
  4. ATORVASTATIN [Suspect]
     Indication: ELECTROCARDIOGRAM ST SEGMENT ELEVATION
     Dates: start: 200604, end: 201108
  5. ATORVASTATIN [Suspect]
     Indication: MYOCARDIAL INFARCTION
     Dates: start: 200604, end: 201108
  6. AMLOPDIPINE [Concomitant]
  7. ASPIRIN [Concomitant]
  8. METOPROLOL [Concomitant]

REACTIONS (2)
  - Polymyositis [None]
  - Drug interaction [None]
